FAERS Safety Report 10220612 (Version 1)
Quarter: 2014Q2

REPORT INFORMATION
  Report Type: Report from Study
  Country: ES (occurrence: ES)
  Receive Date: 20140606
  Receipt Date: 20140606
  Transmission Date: 20141212
  Serious: Yes (Other)
  Sender: FDA-Public Use
  Company Number: ES-ROCHE-1408774

PATIENT
  Age: 86 Year
  Sex: Male

DRUGS (4)
  1. MYCOPHENOLATE MOFETIL [Suspect]
     Indication: PRODUCT USED FOR UNKNOWN INDICATION
     Route: 065
  2. TACROLIMUS [Concomitant]
  3. PREDNISONE [Concomitant]
  4. CICLOSPORIN [Concomitant]

REACTIONS (10)
  - Postoperative hernia [Unknown]
  - Bronchopneumonia [Unknown]
  - Respiratory failure [Unknown]
  - Confusional state [Unknown]
  - Ileus paralytic [Unknown]
  - Enterococcal infection [Unknown]
  - Urinary retention [Unknown]
  - Bacteraemia [Unknown]
  - Cytomegalovirus infection [Unknown]
  - Metabolic encephalopathy [Unknown]
